FAERS Safety Report 5749555-5 (Version None)
Quarter: 2008Q2

REPORT INFORMATION
  Report Type: 
  Country: None (occurrence: None)
  Receive Date: 20080520
  Receipt Date: 20080520
  Transmission Date: 20081010
  Serious: Yes (Hospitalization)
  Sender: FDA-Public Use
  Company Number: None

PATIENT
  Age: 57 Year
  Sex: Male
  Weight: 55.3 kg

DRUGS (2)
  1. GABAPENTIN [Suspect]
     Indication: PAIN
     Dosage: 900 MG TID PO
     Route: 048
     Dates: start: 20060912, end: 20080516
  2. PREGABALIN [Suspect]
     Indication: PAIN
     Dosage: 150 MG TID PO
     Route: 048
     Dates: start: 20080510

REACTIONS (3)
  - CONFUSIONAL STATE [None]
  - MENTAL STATUS CHANGES [None]
  - UNEVALUABLE EVENT [None]
